FAERS Safety Report 16304988 (Version 1)
Quarter: 2019Q2

REPORT INFORMATION
  Report Type: Spontaneous
  Country: US (occurrence: US)
  Receive Date: 20190510
  Receipt Date: 20190510
  Transmission Date: 20190711
  Serious: Yes (Hospitalization)
  Sender: FDA-Public Use
  Company Number: None

PATIENT
  Age: 84 Year
  Sex: Female

DRUGS (1)
  1. LISINOPRIL. [Suspect]
     Active Substance: LISINOPRIL

REACTIONS (3)
  - Dysphagia [None]
  - Lip swelling [None]
  - Therapy change [None]

NARRATIVE: CASE EVENT DATE: 20190326
